FAERS Safety Report 21689326 (Version 1)
Quarter: 2022Q4

REPORT INFORMATION
  Report Type: Spontaneous
  Country: US (occurrence: None)
  Receive Date: 20221206
  Receipt Date: 20221206
  Transmission Date: 20230113
  Serious: Yes (Hospitalization, Disabling)
  Sender: FDA-Public Use
  Company Number: None

PATIENT
  Age: 75 Year
  Sex: Male

DRUGS (5)
  1. TACROLIMUS [Suspect]
     Active Substance: TACROLIMUS
     Indication: Heart transplant
     Dosage: FREQUENCY : DAILY;?
     Route: 048
     Dates: start: 20190313
  2. MYCOPHENOLATE MOFETIL [Concomitant]
     Active Substance: MYCOPHENOLATE MOFETIL
  3. MAGNESIUM OXIDE [Concomitant]
  4. EZETIMIBE [Concomitant]
  5. Citrical/vitamin D tabs [Concomitant]

REACTIONS (2)
  - Urinary tract infection [None]
  - Renal failure [None]

NARRATIVE: CASE EVENT DATE: 20221201
